FAERS Safety Report 19408337 (Version 1)
Quarter: 2021Q2

REPORT INFORMATION
  Report Type: Spontaneous
  Country: CN (occurrence: CN)
  Receive Date: 20210611
  Receipt Date: 20210611
  Transmission Date: 20210717
  Serious: Yes (Hospitalization, Other)
  Sender: FDA-Public Use
  Company Number: CN-ASCEND THERAPEUTICS US, LLC-2112651

PATIENT
  Age: 31 Year
  Sex: Female

DRUGS (7)
  1. CRINONE [Suspect]
     Active Substance: PROGESTERONE
     Route: 067
     Dates: start: 20210419, end: 20210512
  2. ESTROGEL [Suspect]
     Active Substance: ESTRADIOL
  3. OESTROGEL (ESTRADIOL) [Suspect]
     Active Substance: ESTRADIOL
     Route: 050
     Dates: start: 20210419, end: 20210512
  4. UTROGESTAN [Suspect]
     Active Substance: PROGESTERONE
     Route: 067
     Dates: start: 20210419, end: 20210516
  5. FEMOSTON (ESTRADIOL, DYDROGESTERONE) [Suspect]
     Active Substance: DYDROGESTERONE\ESTRADIOL
     Route: 048
     Dates: start: 20210419, end: 20210512
  6. ADENOSYLMETHIONINE (ADEMETIONINE) [Concomitant]
     Route: 065
  7. ESTROGEL [Suspect]
     Active Substance: ESTRADIOL
     Indication: RISK OF FUTURE PREGNANCY MISCARRIAGE
     Route: 050
     Dates: start: 20210419, end: 20210512

REACTIONS (4)
  - Exposure during pregnancy [None]
  - Drug-induced liver injury [Recovered/Resolved]
  - Hepatic function abnormal [Recovered/Resolved]
  - Off label use [None]

NARRATIVE: CASE EVENT DATE: 20210511
